FAERS Safety Report 4783446-1 (Version None)
Quarter: 2005Q3

REPORT INFORMATION
  Report Type: 
  Country: None (occurrence: None)
  Receive Date: 20050928
  Receipt Date: 20050928
  Transmission Date: 20060218
  Serious: Yes (Hospitalization, Other)
  Sender: FDA-Public Use
  Company Number: None

PATIENT
  Sex: Male
  Weight: 80 kg

DRUGS (5)
  1. CAPECITABINE [Suspect]
     Indication: RECTAL CANCER
     Dosage: SEE IMAGE
     Route: 048
     Dates: start: 20050829, end: 20050915
  2. CAPECITABINE [Suspect]
     Indication: RECTAL CANCER
     Dosage: SEE IMAGE
     Route: 048
     Dates: start: 20050912
  3. OXALIPLATIN [Suspect]
     Dosage: SEE IMAGE
     Route: 042
     Dates: start: 20050829, end: 20050912
  4. OXALIPLATIN [Suspect]
     Dosage: SEE IMAGE
     Route: 042
     Dates: start: 20050912
  5. RADIATION [Suspect]
     Dosage: SEE IMAGE
     Dates: start: 20050912

REACTIONS (4)
  - BLOOD ELECTROLYTES DECREASED [None]
  - DEHYDRATION [None]
  - DIARRHOEA HAEMORRHAGIC [None]
  - PROCTITIS [None]
